FAERS Safety Report 25402829 (Version 1)
Quarter: 2025Q2

REPORT INFORMATION
  Report Type: Spontaneous
  Country: US (occurrence: US)
  Receive Date: 20250605
  Receipt Date: 20250605
  Transmission Date: 20250716
  Serious: No
  Sender: ASCENDIS PHARMA
  Company Number: US-ASCENDIS PHARMA-2025US008355

PATIENT

DRUGS (3)
  1. YORVIPATH [Suspect]
     Active Substance: PALOPEGTERIPARATIDE
     Indication: Hypoparathyroidism
     Route: 058
     Dates: start: 20250212
  2. YORVIPATH [Suspect]
     Active Substance: PALOPEGTERIPARATIDE
     Route: 058
     Dates: start: 2025
  3. YORVIPATH [Suspect]
     Active Substance: PALOPEGTERIPARATIDE
     Route: 058
     Dates: start: 2025

REACTIONS (1)
  - Hypocalcaemia [Recovering/Resolving]
